FAERS Safety Report 8816287 (Version 1)
Quarter: 2012Q4

REPORT INFORMATION
  Report Type: Spontaneous
  Country: US (occurrence: None)
  Receive Date: 20120928
  Receipt Date: 20120928
  Transmission Date: 20130627
  Serious: No
  Sender: FDA-Public Use
  Company Number: None

PATIENT
  Age: 65 Year
  Sex: Female
  Weight: 66.23 kg

DRUGS (2)
  1. CLINDAMYCIN [Suspect]
     Indication: ABSCESS GUM
     Dosage: 2 capsules 150 mg 3 times every 8 hrs mouth
     Route: 048
     Dates: start: 20120828, end: 20120904
  2. CLINDAMYCIN [Suspect]
     Indication: TOOTH INFECTION
     Dosage: 2 capsules 150 mg 3 times every 8 hrs mouth
     Route: 048
     Dates: start: 20120828, end: 20120904

REACTIONS (4)
  - Feeling abnormal [None]
  - Throat tightness [None]
  - Muscle tightness [None]
  - Pruritus [None]
